FAERS Safety Report 5016891-X (Version None)
Quarter: 2006Q2

REPORT INFORMATION
  Report Type: 
  Country: None (occurrence: None)
  Receive Date: 20060526
  Receipt Date: 20060512
  Transmission Date: 20061013
  Serious: Yes (Other)
  Sender: FDA-Public Use
  Company Number: GB200605002821

PATIENT
  Age: 48 Year
  Sex: Male

DRUGS (1)
  1. ZYPREXA [Suspect]
     Dosage: 25 MG

REACTIONS (3)
  - DIABETES MELLITUS [None]
  - NEOPLASM MALIGNANT [None]
  - PRESCRIBED OVERDOSE [None]
